FAERS Safety Report 14941905 (Version 4)
Quarter: 2018Q3

REPORT INFORMATION
  Report Type: Report from Study
  Country: DK (occurrence: DK)
  Receive Date: 20180527
  Receipt Date: 20180705
  Transmission Date: 20181010
  Serious: Yes (Hospitalization)
  Sender: FDA-Public Use
  Company Number: DK-NOVOPROD-600968

PATIENT
  Age: 23 Year
  Sex: Female
  Weight: 94.7 kg

DRUGS (4)
  1. BLINDED PLACEBO SOLUTION FOR INJECTION [Suspect]
     Active Substance: INVESTIGATIONAL PRODUCT
     Indication: OBESITY
     Dosage: 3.0 MG, QD
     Route: 058
     Dates: start: 20180412
  2. BLINDED UNKNOWN [Suspect]
     Active Substance: INVESTIGATIONAL PRODUCT
     Indication: OBESITY
     Dosage: 3.0 MG, QD
     Route: 058
     Dates: start: 20180412
  3. BLINDED NO DRUG GIVEN [Suspect]
     Active Substance: INVESTIGATIONAL PRODUCT
     Indication: OBESITY
     Dosage: 3.0 MG, QD
     Route: 058
     Dates: start: 20180412
  4. BLINDED LIRAGLUTIDE 6MG/ML PDS290 [Suspect]
     Active Substance: LIRAGLUTIDE
     Indication: OBESITY
     Dosage: 3.0 MG, QD
     Route: 058
     Dates: start: 20180412

REACTIONS (1)
  - Biliary colic [Recovered/Resolved]

NARRATIVE: CASE EVENT DATE: 20180515
